FAERS Safety Report 5264281-7 (Version None)
Quarter: 2007Q1

REPORT INFORMATION
  Report Type: 
  Country: None (occurrence: None)
  Receive Date: 20070309
  Receipt Date: 20070301
  Transmission Date: 20070707
  Serious: Yes (Hospitalization, Other)
  Sender: FDA-Public Use
  Company Number: 237656

PATIENT
  Sex: Male
  Weight: 2.1 kg

DRUGS (2)
  1. ALTEPLASE (ALTEPLASE) PWDR + SOLVENT, INFUSION SOLN [Suspect]
     Indication: CEREBRAL ARTERY OCCLUSION
     Dosage: 0.9 MG/KG, SINGLE, INTRAVENOUS
     Route: 042
  2. LOW MOLECULAR HEPARIN (LOW MOLECULAR WEIGHT HEPARINS) [Concomitant]

REACTIONS (2)
  - DRUG EXPOSURE DURING PREGNANCY [None]
  - PREMATURE BABY [None]
